FAERS Safety Report 10081665 (Version 1)
Quarter: 2014Q2

REPORT INFORMATION
  Report Type: Spontaneous
  Country: CN (occurrence: CN)
  Receive Date: 20140416
  Receipt Date: 20140416
  Transmission Date: 20141212
  Serious: Yes (Hospitalization, Other)
  Sender: FDA-Public Use
  Company Number: CN-PFIZER INC-2014101528

PATIENT
  Age: 85 Year
  Sex: Female
  Weight: 51 kg

DRUGS (1)
  1. GLUCOTROL XL [Suspect]
     Indication: DIABETES MELLITUS
     Dosage: 5 MG, 1X/DAY
     Route: 048
     Dates: start: 20130201, end: 20130212

REACTIONS (3)
  - Hypoglycaemic coma [Recovering/Resolving]
  - White blood cell count increased [Recovering/Resolving]
  - Blood electrolytes decreased [Unknown]
